FAERS Safety Report 5387788-0 (Version None)
Quarter: 2007Q3

REPORT INFORMATION
  Report Type: 
  Country: None (occurrence: None)
  Receive Date: 20070716
  Receipt Date: 20070705
  Transmission Date: 20080115
  Serious: Yes (Disabling)
  Sender: FDA-Public Use
  Company Number: US-ROCHE-503881

PATIENT
  Age: 41 Year
  Sex: Male
  Weight: 79.4 kg

DRUGS (6)
  1. LARIAM [Suspect]
     Indication: PROPHYLAXIS
     Dosage: REPORTED THAT PATIENT TOOK 3 DOSES.
     Route: 065
     Dates: start: 20030901
  2. ATIVAN [Concomitant]
     Route: 048
     Dates: start: 20030910
  3. LEXAPRO [Concomitant]
     Route: 048
     Dates: start: 20031010
  4. WELLBUTRIN [Concomitant]
     Dosage: REPORTED AS 150-450MG.
     Route: 048
     Dates: start: 20040323
  5. UNSPECIFIED MEDICATION [Concomitant]
     Route: 048
     Dates: start: 20030610
  6. ALLEGRA [Concomitant]
     Route: 048

REACTIONS (8)
  - ABNORMAL DREAMS [None]
  - DEPRESSION [None]
  - FATIGUE [None]
  - ILL-DEFINED DISORDER [None]
  - MENTAL DISORDER [None]
  - PYREXIA [None]
  - SLEEP DISORDER [None]
  - TREMOR [None]
